FAERS Safety Report 8552129-4 (Version None)
Quarter: 2012Q3

REPORT INFORMATION
  Report Type: 
  Country: None (occurrence: None)
  Receive Date: 20120731
  Receipt Date: 20120723
  Transmission Date: 20120928
  Serious: No
  Sender: FDA-Public Use
  Company Number: US-BIOGENIDEC-2012BI027275

PATIENT
  Age: 57 Year
  Sex: Male

DRUGS (2)
  1. TYSABRI [Suspect]
     Indication: MULTIPLE SCLEROSIS
     Route: 042
     Dates: start: 20100810, end: 20120525
  2. TYSABRI [Suspect]
     Route: 042
     Dates: start: 20120726

REACTIONS (2)
  - MENTAL IMPAIRMENT [None]
  - FATIGUE [None]
